FAERS Safety Report 14784135 (Version 1)
Quarter: 2018Q2

REPORT INFORMATION
  Report Type: Report from Study
  Country: DE (occurrence: DE)
  Receive Date: 20180420
  Receipt Date: 20180420
  Transmission Date: 20180711
  Serious: Yes (Congenital Anomaly, Other)
  Sender: FDA-Public Use
  Company Number: DE-TEVA-2018-DE-882332

PATIENT
  Sex: Male

DRUGS (6)
  1. IBUPROFEN. [Suspect]
     Active Substance: IBUPROFEN
     Route: 064
  2. LYNESTRENOL [Suspect]
     Active Substance: LYNESTRENOL
     Route: 064
  3. DICLOFENAC [Suspect]
     Active Substance: DICLOFENAC
     Indication: PAIN
     Dosage: AS NEEDED
     Route: 064
  4. LEVOTHYROXINE. [Suspect]
     Active Substance: LEVOTHYROXINE
     Route: 064
  5. PARACETAMOL [Suspect]
     Active Substance: ACETAMINOPHEN
     Route: 064
  6. OMEPRAZOLE. [Suspect]
     Active Substance: OMEPRAZOLE
     Route: 064

REACTIONS (3)
  - Macrocephaly [Unknown]
  - Cerebral atrophy [Unknown]
  - Foetal exposure during pregnancy [Unknown]
